FAERS Safety Report 7239995-X (Version None)
Quarter: 2011Q1

REPORT INFORMATION
  Report Type: 
  Country: None (occurrence: None)
  Receive Date: 20110124
  Receipt Date: 20110112
  Transmission Date: 20110831
  Serious: No
  Sender: FDA-Public Use
  Company Number: US-BIOGENIDEC-2010BI044171

PATIENT
  Age: 37 Year
  Sex: Female

DRUGS (1)
  1. TYSABRI [Suspect]
     Indication: MULTIPLE SCLEROSIS
     Route: 042
     Dates: start: 20090205

REACTIONS (5)
  - PAIN IN EXTREMITY [None]
  - GALLBLADDER DISORDER [None]
  - PAIN [None]
  - NAUSEA [None]
  - HEPATIC ENZYME INCREASED [None]
